FAERS Safety Report 21171702 (Version 4)
Quarter: 2022Q4

REPORT INFORMATION
  Report Type: Report from Study
  Country: CA (occurrence: CA)
  Receive Date: 20220804
  Receipt Date: 20221025
  Transmission Date: 20230112
  Serious: Yes (Other)
  Sender: FDA-Public Use
  Company Number: CA-JNJFOC-20220232855

PATIENT
  Age: 58 Year
  Sex: Female
  Weight: 43 kg

DRUGS (2)
  1. REMICADE [Suspect]
     Active Substance: INFLIXIMAB
     Indication: Rheumatoid arthritis
     Dosage: PATIENT INFUSED ON 11-MAR-2022 (REPORTED AS TODAY)
     Route: 042
     Dates: start: 20100724
  2. REMICADE [Suspect]
     Active Substance: INFLIXIMAB
     Indication: Crohn^s disease
     Route: 042
     Dates: start: 2018

REACTIONS (7)
  - Arthritis [Recovering/Resolving]
  - Back pain [Unknown]
  - COVID-19 [Recovering/Resolving]
  - Epistaxis [Unknown]
  - Rhinalgia [Unknown]
  - Skin ulcer [Recovering/Resolving]
  - Nausea [Unknown]

NARRATIVE: CASE EVENT DATE: 20220701
